FAERS Safety Report 8671985 (Version 4)
Quarter: 2013Q4

REPORT INFORMATION
  Report Type: Spontaneous
  Country: US (occurrence: US)
  Receive Date: 20120718
  Receipt Date: 20131101
  Transmission Date: 20140711
  Serious: No
  Sender: FDA-Public Use
  Company Number: US-009507513-1207USA002236

PATIENT
  Age: 67 Year
  Sex: Male

DRUGS (3)
  1. VICTRELIS [Suspect]
     Indication: CHRONIC HEPATITIS C
     Dosage: 800 MG, TID
     Route: 048
     Dates: start: 20120515
  2. RIBAPAK [Suspect]
     Indication: HEPATITIS C
     Dosage: DAILY DOSAGE SPECIFIED AS ^1200^ (NO UNITS PROVIDED)
     Route: 048
     Dates: start: 20120415
  3. PEGASYS [Suspect]
     Indication: HEPATITIS C
     Dosage: UNK
     Route: 048
     Dates: start: 20120415

REACTIONS (2)
  - Dyspnoea [Recovering/Resolving]
  - Fatigue [Recovered/Resolved]
